FAERS Safety Report 5838702-2 (Version None)
Quarter: 2008Q3

REPORT INFORMATION
  Report Type: 
  Country: None (occurrence: None)
  Receive Date: 20080808
  Receipt Date: 20080805
  Transmission Date: 20090109
  Serious: Yes (Other)
  Sender: FDA-Public Use
  Company Number: B0527000A

PATIENT
  Age: 82 Year
  Sex: Male
  Weight: 56 kg

DRUGS (8)
  1. ARIXTRA [Suspect]
     Indication: THROMBOSIS PROPHYLAXIS
     Dosage: 2.5MG PER DAY
     Route: 058
     Dates: start: 20080603, end: 20080606
  2. ZANTAC [Concomitant]
     Indication: GASTRITIS
     Route: 048
     Dates: start: 20080520, end: 20080601
  3. UNKNOWN DRUG [Concomitant]
     Indication: PAIN
     Dosage: 180MG PER DAY
     Route: 048
     Dates: start: 20080520, end: 20080606
  4. RISPERDAL [Concomitant]
     Indication: DELIRIUM
     Dosage: 4ML PER DAY
     Route: 048
     Dates: start: 20080520, end: 20080708
  5. GASCON [Concomitant]
     Indication: GASTRITIS
     Dosage: 120MG PER DAY
     Route: 048
     Dates: start: 20080520, end: 20080708
  6. MUCOSTA [Concomitant]
     Indication: GASTRITIS
     Dosage: 300MG PER DAY
     Route: 048
     Dates: start: 20080520, end: 20080606
  7. UNKNOWN DRUG [Concomitant]
     Indication: DIABETES MELLITUS
     Dates: start: 20080520, end: 20080708
  8. ZANTAC [Concomitant]
     Dosage: 300MG PER DAY
     Route: 048
     Dates: start: 20080608, end: 20080617

REACTIONS (3)
  - GASTRIC ULCER [None]
  - GASTROINTESTINAL HAEMORRHAGE [None]
  - HAEMATOCHEZIA [None]
